FAERS Safety Report 14686506 (Version 1)
Quarter: 2018Q1

REPORT INFORMATION
  Report Type: Spontaneous
  Country: PL (occurrence: PL)
  Receive Date: 20180327
  Receipt Date: 20180327
  Transmission Date: 20180509
  Serious: Yes (Other)
  Sender: FDA-Public Use
  Company Number: PL-B. BRAUN MEDICAL INC.-2044638

PATIENT
  Age: 6 Year
  Weight: 17 kg

DRUGS (3)
  1. SODIUM CHLORIDE INJECTIONS USP 0264-7800-00 0264-7800-10 [Suspect]
     Active Substance: SODIUM CHLORIDE
     Indication: MEDICATION DILUTION
     Route: 042
     Dates: start: 20151020, end: 20151020
  2. LEVOTHYROXINE. [Suspect]
     Active Substance: LEVOTHYROXINE
     Route: 048
  3. ALDURAZYME [Suspect]
     Active Substance: LARONIDASE
     Route: 042
     Dates: start: 20151020, end: 20151020

REACTIONS (3)
  - Angioedema [Unknown]
  - Erythema [Unknown]
  - Urticaria [Unknown]

NARRATIVE: CASE EVENT DATE: 20151020
